FAERS Safety Report 10178694 (Version 1)
Quarter: 2014Q2

REPORT INFORMATION
  Report Type: Spontaneous
  Country: US (occurrence: None)
  Receive Date: 20140515
  Receipt Date: 20140515
  Transmission Date: 20141212
  Serious: No
  Sender: FDA-Public Use
  Company Number: AER14-05

PATIENT
  Age: 50 Year
  Sex: Female
  Weight: 65.9 kg

DRUGS (10)
  1. VECAMYL [Suspect]
     Indication: AFFECTIVE DISORDER
     Route: 048
     Dates: start: 20140221
  2. ADDERALL [Concomitant]
  3. ZOLOF [Concomitant]
  4. ABILIFY [Concomitant]
  5. ZOCOR [Concomitant]
  6. CLONAZEPAM [Concomitant]
  7. ZINC [Concomitant]
  8. GARLIC [Concomitant]
  9. VIT D [Concomitant]
  10. VIT A [Concomitant]

REACTIONS (2)
  - Muscle twitching [None]
  - Dyskinesia [None]
